FAERS Safety Report 16126412 (Version 1)
Quarter: 2019Q2

REPORT INFORMATION
  Report Type: Spontaneous
  Country: US (occurrence: US)
  Receive Date: 20190327
  Receipt Date: 20190327
  Transmission Date: 20190711
  Serious: Yes (Disabling)
  Sender: FDA-Public Use
  Company Number: None

PATIENT
  Age: 41 Year
  Sex: Female
  Weight: 83.25 kg

DRUGS (6)
  1. AIMOVIG [Suspect]
     Active Substance: ERENUMAB-AOOE
     Indication: MIGRAINE
     Dosage: ?          OTHER FREQUENCY:MONTHLY;?
     Route: 030
     Dates: start: 20181209, end: 20190309
  2. DULOXETINE. [Concomitant]
     Active Substance: DULOXETINE
  3. MAGNESIUM [Concomitant]
     Active Substance: MAGNESIUM
  4. D [Concomitant]
  5. OTHER VITAMINS [Concomitant]
     Active Substance: VITAMINS
  6. VITAMIN B12 [Concomitant]
     Active Substance: CYANOCOBALAMIN

REACTIONS (4)
  - Fatigue [None]
  - Bedridden [None]
  - Impaired work ability [None]
  - Hypersomnia [None]

NARRATIVE: CASE EVENT DATE: 20190315
